FAERS Safety Report 19951366 (Version 1)
Quarter: 2021Q4

REPORT INFORMATION
  Report Type: Spontaneous
  Country: IN (occurrence: IN)
  Receive Date: 20211014
  Receipt Date: 20211014
  Transmission Date: 20220303
  Serious: Yes (Hospitalization, Congenital Anomaly, Other)
  Sender: FDA-Public Use
  Company Number: IN-CIPLA LTD.-2021IN06765

PATIENT

DRUGS (1)
  1. OLANZAPINE [Suspect]
     Active Substance: OLANZAPINE
     Dosage: UNK
     Route: 064

REACTIONS (7)
  - Truncus arteriosus persistent [Unknown]
  - Hyperkalaemia [Unknown]
  - Premature baby [Unknown]
  - Inguinal hernia strangulated [Recovered/Resolved]
  - Polycythaemia [Unknown]
  - Metabolic acidosis [Unknown]
  - Foetal exposure during pregnancy [Unknown]
